FAERS Safety Report 17083753 (Version 2)
Quarter: 2019Q4

REPORT INFORMATION
  Report Type: Spontaneous
  Country: DE (occurrence: DE)
  Receive Date: 20191127
  Receipt Date: 20191203
  Transmission Date: 20200122
  Serious: Yes (Hospitalization)
  Sender: FDA-Public Use
  Company Number: DE-MYLANLABS-2019M1115759

PATIENT
  Age: 77 Year
  Sex: Male
  Weight: 72 kg

DRUGS (13)
  1. CLONISTADA [Concomitant]
     Active Substance: CLONIDINE HYDROCHLORIDE
     Dosage: 0.3 MILLIGRAM (0.5-0-0-0, TABLETTEN)
     Route: 048
  2. PANTOPRAZOL                        /01263201/ [Concomitant]
     Active Substance: PANTOPRAZOLE
     Dosage: 40 MILLIGRAM, QD (0-0-1-0, TABLETTEN)
     Route: 048
  3. VALSARTAN. [Concomitant]
     Active Substance: VALSARTAN
     Dosage: 80 MILLIGRAM, QD (1-0-0-0, TABLETTEN)
     Route: 048
  4. SIMVASTATIN. [Concomitant]
     Active Substance: SIMVASTATIN
     Dosage: 40 MILLIGRAM, QD (0-0-1-0, TABLETTEN)
     Route: 048
  5. APIXABAN [Concomitant]
     Active Substance: APIXABAN
     Dosage: 2.5 MILLIGRAM, BID (1-0-1-0, TABLETTEN)
     Route: 048
  6. NOVODIGAL (.BETA.-ACETYLDIGOXIN) [Suspect]
     Active Substance: .BETA.-ACETYLDIGOXIN
     Indication: PRODUCT USED FOR UNKNOWN INDICATION
     Dosage: 0.3 MILLIGRAM (PAUSIERT, TABLETTEN)
     Route: 048
  7. PREGABALIN. [Concomitant]
     Active Substance: PREGABALIN
     Dosage: 50 MILLIGRAM, (2-0-2-0, TABLETTEN)
     Route: 048
  8. HCT [Concomitant]
     Active Substance: HYDROCHLOROTHIAZIDE
     Dosage: 25 MILLIGRAM, QD (1-0-0-0, TABLETTEN)
     Route: 048
  9. BISOPROLOL [Suspect]
     Active Substance: BISOPROLOL
     Indication: PRODUCT USED FOR UNKNOWN INDICATION
     Dosage: 5 MILLIGRAM, BID (1-0-1-0, TABLETTEN)
     Route: 048
  10. FUROSEMID                          /00032601/ [Concomitant]
     Active Substance: FUROSEMIDE
     Dosage: 40 MILLIGRAM, BID (1-1-0-0, TABLETTEN)
     Route: 048
  11. L-THYROXIN                         /00068002/ [Concomitant]
     Active Substance: LEVOTHYROXINE SODIUM
     Dosage: 125 MICROGRAM, QD (1-0-0-0, TABLETTEN)
     Route: 048
  12. VALPROINSAEURE [Concomitant]
     Active Substance: VALPROIC ACID
     Dosage: 300 MILLIGRAM, (2-1-2-0, TABLETTEN)
     Route: 048
  13. AMLODIPIN                          /00972401/ [Concomitant]
     Active Substance: AMLODIPINE BESYLATE
     Dosage: 5 MILLIGRAM, BID (1-0-1-0, TABLETTEN)
     Route: 048

REACTIONS (5)
  - Disturbance in attention [Unknown]
  - General physical health deterioration [Unknown]
  - Bradycardia [Unknown]
  - Depressed level of consciousness [Unknown]
  - Electrocardiogram abnormal [Unknown]
